FAERS Safety Report 7133170-5 (Version None)
Quarter: 2010Q4

REPORT INFORMATION
  Report Type: 
  Country: None (occurrence: None)
  Receive Date: 20101202
  Receipt Date: 20101116
  Transmission Date: 20110411
  Serious: No
  Sender: FDA-Public Use
  Company Number: US-B.I. PHARMACEUTICALS,INC./RIDGEFIELD-2010-BP-12872BP

PATIENT
  Sex: Female

DRUGS (10)
  1. ZANTAC 150 [Suspect]
     Indication: DYSPEPSIA
     Dosage: 450 MG
     Route: 048
     Dates: start: 20101111, end: 20101112
  2. ZANTAC 150 [Suspect]
     Dosage: 300 MG
     Route: 048
     Dates: start: 20101112, end: 20101114
  3. K-DUR [Concomitant]
     Indication: PROPHYLAXIS
     Dosage: 20 MEQ
  4. ZITHROPAN [Concomitant]
     Indication: URINARY INCONTINENCE
     Dosage: 5 MG
  5. GLUCOPHAGE [Concomitant]
     Indication: DIABETES MELLITUS
     Dosage: 1500 MG
  6. PLAVIX [Concomitant]
     Indication: BLOOD CHOLESTEROL INCREASED
     Dosage: 75 MG
  7. METOPROLOL SUCCINATE [Concomitant]
     Indication: HYPERTENSION
     Dosage: 50 MG
  8. ASPIRIN [Concomitant]
     Indication: PROPHYLAXIS
     Dosage: 162 MG
  9. BUMEX [Concomitant]
     Indication: FLUID RETENTION
     Dosage: 5 MG
  10. DLUCLOSAMIDE [Concomitant]
     Indication: ARTHRITIS

REACTIONS (1)
  - DRUG INEFFECTIVE [None]
